FAERS Safety Report 23175666 (Version 2)
Quarter: 2023Q4

REPORT INFORMATION
  Report Type: Report from Study
  Country: US (occurrence: None)
  Receive Date: 20231113
  Receipt Date: 20231206
  Transmission Date: 20240110
  Serious: Yes (Hospitalization, Disabling)
  Sender: FDA-Public Use
  Company Number: US-ROCHE-3452714

PATIENT
  Age: 76 Year
  Sex: Male
  Weight: 97.5 kg

DRUGS (9)
  1. RITUXIMAB [Suspect]
     Active Substance: RITUXIMAB
     Indication: Follicular lymphoma
     Dosage: ON DAY 1 AND 8 IN CYCLE 1?ON DAY -14 AND DAY -7?IN CYCLE 1
     Route: 041
     Dates: start: 20231015
  2. EPCORITAMAB [Suspect]
     Active Substance: EPCORITAMAB
     Indication: Follicular lymphoma
     Dosage: ON DAY 1 AND 8 IN CYCLE 1
     Route: 058
     Dates: start: 20231015
  3. DEXAMETHASONE [Concomitant]
     Active Substance: DEXAMETHASONE
     Dates: start: 20231015, end: 20231025
  4. MAGNESIUM OXIDE [Concomitant]
     Active Substance: MAGNESIUM OXIDE
     Dates: start: 20231014
  5. METOPROLOL SUCCINATE [Concomitant]
     Active Substance: METOPROLOL SUCCINATE
     Dates: start: 20231005
  6. OMEPRAZOLE [Concomitant]
     Active Substance: OMEPRAZOLE
     Dates: start: 20231013, end: 20231014
  7. ACYCLOVIR [Concomitant]
     Active Substance: ACYCLOVIR
     Dates: start: 20231005
  8. FUROSEMIDE [Concomitant]
     Active Substance: FUROSEMIDE
     Dates: start: 20231005
  9. ELIQUIS [Concomitant]
     Active Substance: APIXABAN

REACTIONS (5)
  - Staphylococcal bacteraemia [Not Recovered/Not Resolved]
  - Diabetes mellitus [Not Recovered/Not Resolved]
  - Atrial fibrillation [Not Recovered/Not Resolved]
  - Pyuria [Not Recovered/Not Resolved]
  - Dizziness [Not Recovered/Not Resolved]

NARRATIVE: CASE EVENT DATE: 20231025
